FAERS Safety Report 10108285 (Version 2)
Quarter: 2014Q3

REPORT INFORMATION
  Report Type: Other
  Country: US (occurrence: US)
  Receive Date: 20140425
  Receipt Date: 20140922
  Transmission Date: 20150326
  Serious: Yes (Hospitalization, Other)
  Sender: FDA-Public Use
  Company Number: US-GSKPPD-2014GSK006695

PATIENT
  Age: 72 Year
  Sex: Male

DRUGS (8)
  1. COUMADIN [Concomitant]
     Active Substance: WARFARIN SODIUM
  2. AVANDIA [Suspect]
     Active Substance: ROSIGLITAZONE MALEATE
     Indication: DIABETES MELLITUS
     Dosage: DATES OF AVANDIA USE COULD NOT BE CONFIRMED IN RECORDS REVIEWED.
     Route: 048
  3. LASIX [Concomitant]
     Active Substance: FUROSEMIDE
  4. PROCARDIA XL [Concomitant]
     Active Substance: NIFEDIPINE
  5. COREG [Concomitant]
     Active Substance: CARVEDILOL
  6. ZOCOR [Concomitant]
     Active Substance: SIMVASTATIN
  7. IMDUR [Concomitant]
     Active Substance: ISOSORBIDE MONONITRATE
  8. ALTACE [Concomitant]
     Active Substance: RAMIPRIL

REACTIONS (1)
  - Acute myocardial infarction [Recovered/Resolved]

NARRATIVE: CASE EVENT DATE: 20060512
